FAERS Safety Report 19160961 (Version 1)
Quarter: 2021Q2

REPORT INFORMATION
  Report Type: Spontaneous
  Country: US (occurrence: US)
  Receive Date: 20210421
  Receipt Date: 20210421
  Transmission Date: 20210717
  Serious: Yes (Death, Hospitalization, Other)
  Sender: FDA-Public Use
  Company Number: US-SUN PHARMACEUTICAL INDUSTRIES LTD-2021R1-292364

PATIENT
  Age: 43 Year
  Sex: Male

DRUGS (2)
  1. DEXMEDETOMIDINE. [Suspect]
     Active Substance: DEXMEDETOMIDINE
     Indication: DELIRIUM
     Dosage: 0.4 MICROGRAM/KILOGRAM, Q1H
     Route: 065
  2. DEXMEDETOMIDINE. [Suspect]
     Active Substance: DEXMEDETOMIDINE
     Indication: PAIN
     Dosage: 0.8 MICROGRAM/KILOGRAM, Q1H
     Route: 065

REACTIONS (1)
  - Therapy partial responder [Fatal]
